FAERS Safety Report 15939305 (Version 4)
Quarter: 2019Q2

REPORT INFORMATION
  Report Type: Spontaneous
  Country: US (occurrence: US)
  Receive Date: 20190208
  Receipt Date: 20190528
  Transmission Date: 20190711
  Serious: Yes (Other)
  Sender: FDA-Public Use
  Company Number: US-ASTRAZENECA-2018SF27107

PATIENT
  Sex: Female
  Weight: 75.8 kg

DRUGS (34)
  1. NEXIUM [Suspect]
     Active Substance: ESOMEPRAZOLE MAGNESIUM
     Indication: GASTROOESOPHAGEAL REFLUX DISEASE
     Dosage: GENERIC-20MG DAILY
     Route: 065
     Dates: start: 2006, end: 2017
  2. PRILOSEC [Suspect]
     Active Substance: OMEPRAZOLE MAGNESIUM
     Indication: GASTROOESOPHAGEAL REFLUX DISEASE
     Route: 065
     Dates: start: 1999, end: 2017
  3. VIOXX [Concomitant]
     Active Substance: ROFECOXIB
  4. RANITIDINE. [Concomitant]
     Active Substance: RANITIDINE
  5. BENADRYL [Concomitant]
     Active Substance: DIPHENHYDRAMINE HYDROCHLORIDE
     Indication: MULTIPLE ALLERGIES
  6. NEXIUM 24HR [Suspect]
     Active Substance: ESOMEPRAZOLE MAGNESIUM
     Indication: GASTROOESOPHAGEAL REFLUX DISEASE
     Route: 048
  7. PRILOSEC [Suspect]
     Active Substance: OMEPRAZOLE MAGNESIUM
     Indication: GASTROOESOPHAGEAL REFLUX DISEASE
     Dosage: GENERIC
     Route: 048
     Dates: start: 20070530
  8. PRILOSEC OTC [Suspect]
     Active Substance: OMEPRAZOLE MAGNESIUM
     Indication: GASTROOESOPHAGEAL REFLUX DISEASE
     Route: 048
     Dates: start: 2015, end: 2016
  9. GABAPENTIN. [Concomitant]
     Active Substance: GABAPENTIN
  10. LYRICA [Concomitant]
     Active Substance: PREGABALIN
     Indication: FIBROMYALGIA
  11. PREMARIN [Concomitant]
     Active Substance: ESTROGENS, CONJUGATED
  12. LEXAPRO [Concomitant]
     Active Substance: ESCITALOPRAM OXALATE
  13. AMITRIPTYLINE [Concomitant]
     Active Substance: AMITRIPTYLINE
  14. DONEPEZIL. [Concomitant]
     Active Substance: DONEPEZIL
     Indication: AMNESIA
  15. IMODIUM [Concomitant]
     Active Substance: LOPERAMIDE HYDROCHLORIDE
     Indication: INFLAMMATORY BOWEL DISEASE
  16. NEXIUM [Suspect]
     Active Substance: ESOMEPRAZOLE MAGNESIUM
     Indication: GASTROOESOPHAGEAL REFLUX DISEASE
     Route: 048
  17. PRILOSEC [Suspect]
     Active Substance: OMEPRAZOLE MAGNESIUM
     Indication: GASTROOESOPHAGEAL REFLUX DISEASE
     Route: 048
     Dates: start: 201511, end: 201602
  18. PRILOSEC [Suspect]
     Active Substance: OMEPRAZOLE MAGNESIUM
     Indication: GASTROOESOPHAGEAL REFLUX DISEASE
     Dosage: GENERIC-20MG DAILY
     Route: 065
     Dates: start: 20070530
  19. PRILOSEC OTC [Suspect]
     Active Substance: OMEPRAZOLE MAGNESIUM
     Indication: GASTROOESOPHAGEAL REFLUX DISEASE
     Route: 048
     Dates: start: 201511, end: 201602
  20. NAPROXEN. [Concomitant]
     Active Substance: NAPROXEN
  21. VOLTAREN [Concomitant]
     Active Substance: DICLOFENAC SODIUM
  22. AMOXICILLIN. [Concomitant]
     Active Substance: AMOXICILLIN
  23. DICYCLOMINE [Concomitant]
     Active Substance: DICYCLOMINE HYDROCHLORIDE
     Indication: INFLAMMATORY BOWEL DISEASE
  24. ATENOLOL. [Concomitant]
     Active Substance: ATENOLOL
  25. INDOMETHACIN. [Concomitant]
     Active Substance: INDOMETHACIN
  26. AZITHROMYCIN ANHYDROUS. [Concomitant]
     Active Substance: AZITHROMYCIN ANHYDROUS
  27. NEXIUM 24HR [Suspect]
     Active Substance: ESOMEPRAZOLE MAGNESIUM
     Indication: GASTROOESOPHAGEAL REFLUX DISEASE
     Route: 048
     Dates: start: 2006, end: 2017
  28. PREVACID [Suspect]
     Active Substance: LANSOPRAZOLE
     Route: 065
  29. ATENOLOL. [Concomitant]
     Active Substance: ATENOLOL
  30. AZITHROMYCIN ANHYDROUS. [Concomitant]
     Active Substance: AZITHROMYCIN ANHYDROUS
  31. PRILOSEC [Suspect]
     Active Substance: OMEPRAZOLE MAGNESIUM
     Indication: GASTROOESOPHAGEAL REFLUX DISEASE
     Route: 048
     Dates: start: 20000427
  32. PREVACID 24 HR [Suspect]
     Active Substance: LANSOPRAZOLE
     Route: 065
  33. LEVAQUIN [Concomitant]
     Active Substance: LEVOFLOXACIN
  34. DIOVAN [Concomitant]
     Active Substance: VALSARTAN

REACTIONS (4)
  - Acute kidney injury [Not Recovered/Not Resolved]
  - Chronic kidney disease [Not Recovered/Not Resolved]
  - Hyperparathyroidism secondary [Unknown]
  - Nephrogenic anaemia [Unknown]
